FAERS Safety Report 6501197-X (Version None)
Quarter: 2009Q4

REPORT INFORMATION
  Report Type: 
  Country: None (occurrence: None)
  Receive Date: 20091216
  Receipt Date: 20090917
  Transmission Date: 20100525
  Serious: No
  Sender: FDA-Public Use
  Company Number: A0807981A

PATIENT
  Sex: Male

DRUGS (1)
  1. COMMIT [Suspect]

REACTIONS (1)
  - STOMATITIS [None]
